FAERS Safety Report 17532948 (Version 1)
Quarter: 2020Q1

REPORT INFORMATION
  Report Type: Spontaneous
  Country: US (occurrence: US)
  Receive Date: 20200304
  Receipt Date: 20200304
  Transmission Date: 20200409
  Serious: Yes (Other)
  Sender: FDA-Public Use
  Company Number: None

PATIENT
  Sex: Male

DRUGS (1)
  1. HUMIRA [Suspect]
     Active Substance: ADALIMUMAB
     Indication: CROHN^S DISEASE
     Dosage: ?          OTHER STRENGTH:40MG/0.4ML;OTHER FREQUENCY:EVERY 2 WEEKS;?
     Route: 058
     Dates: start: 20191030

REACTIONS (1)
  - Fatigue [None]
